FAERS Safety Report 25213467 (Version 1)
Quarter: 2025Q2

REPORT INFORMATION
  Report Type: Spontaneous
  Country: FR (occurrence: FR)
  Receive Date: 20250418
  Receipt Date: 20250418
  Transmission Date: 20250716
  Serious: Yes (Other)
  Sender: TEVA
  Company Number: None

PATIENT
  Age: 67 Year
  Sex: Female

DRUGS (9)
  1. ALLOPURINOL [Suspect]
     Active Substance: ALLOPURINOL
     Indication: Prophylaxis
     Route: 048
     Dates: start: 20240813, end: 20250319
  2. INREBIC [Suspect]
     Active Substance: FEDRATINIB HYDROCHLORIDE
     Indication: Primary myelofibrosis
     Route: 048
     Dates: start: 20240913, end: 20241113
  3. INREBIC [Suspect]
     Active Substance: FEDRATINIB HYDROCHLORIDE
     Indication: Primary myelofibrosis
     Route: 048
     Dates: start: 20231026, end: 20240521
  4. INREBIC [Suspect]
     Active Substance: FEDRATINIB HYDROCHLORIDE
     Indication: Primary myelofibrosis
     Route: 048
     Dates: start: 20241114, end: 20241211
  5. INREBIC [Suspect]
     Active Substance: FEDRATINIB HYDROCHLORIDE
     Indication: Primary myelofibrosis
     Route: 048
     Dates: start: 20241212, end: 20250319
  6. INREBIC [Suspect]
     Active Substance: FEDRATINIB HYDROCHLORIDE
     Indication: Primary myelofibrosis
     Route: 048
     Dates: start: 20240522, end: 20240912
  7. HYDREA [Suspect]
     Active Substance: HYDROXYUREA
     Indication: Primary myelofibrosis
     Route: 048
     Dates: start: 20240913, end: 20241113
  8. HYDREA [Suspect]
     Active Substance: HYDROXYUREA
     Indication: Primary myelofibrosis
     Route: 048
     Dates: start: 20241212, end: 20250319
  9. HYDREA [Suspect]
     Active Substance: HYDROXYUREA
     Indication: Primary myelofibrosis
     Route: 048
     Dates: start: 20240610, end: 20240813

REACTIONS (1)
  - Hepatic cytolysis [Recovered/Resolved]

NARRATIVE: CASE EVENT DATE: 20250317
